FAERS Safety Report 23225421 (Version 1)
Quarter: 2023Q4

REPORT INFORMATION
  Report Type: Report from Study
  Country: US (occurrence: US)
  Receive Date: 20231124
  Receipt Date: 20231124
  Transmission Date: 20240109
  Serious: Yes (Hospitalization, Other)
  Sender: FDA-Public Use
  Company Number: US-HORIZON THERAPEUTICS-HZN-2023-009571

PATIENT

DRUGS (1)
  1. UPLIZNA [Suspect]
     Active Substance: INEBILIZUMAB-CDON
     Indication: Product used for unknown indication
     Dosage: UNK
     Route: 065
     Dates: start: 20220831

REACTIONS (3)
  - Pneumothorax [Unknown]
  - Pneumonia [Unknown]
  - Upper respiratory tract infection [Unknown]
